FAERS Safety Report 7481044-2 (Version None)
Quarter: 2011Q2

REPORT INFORMATION
  Report Type: 
  Country: None (occurrence: None)
  Receive Date: 20110516
  Receipt Date: 20110405
  Transmission Date: 20111010
  Serious: Yes (Hospitalization, Other)
  Sender: FDA-Public Use
  Company Number: US-BAYER-201036251NA

PATIENT
  Age: 36 Year
  Sex: Female
  Weight: 68.027 kg

DRUGS (6)
  1. FAMOTIDINE [Concomitant]
     Dosage: 20 MG, UNK
  2. YAZ [Suspect]
     Indication: PREMENSTRUAL SYNDROME
     Route: 048
     Dates: start: 20071001, end: 20090507
  3. YAZ [Suspect]
  4. PREVACID [Concomitant]
     Dosage: 30 MG, UNK
  5. ALPRAZOLAM [Concomitant]
  6. PROCHLOROPERAZINE [Concomitant]

REACTIONS (3)
  - PANCREATITIS [None]
  - GALLBLADDER DISORDER [None]
  - CHOLECYSTITIS CHRONIC [None]
